FAERS Safety Report 8617910-1 (Version None)
Quarter: 2012Q3

REPORT INFORMATION
  Report Type: 
  Country: None (occurrence: None)
  Receive Date: 20120824
  Receipt Date: 20120308
  Transmission Date: 20120928
  Serious: No
  Sender: FDA-Public Use
  Company Number: US-ASTRAZENECA-2012SE16536

PATIENT
  Age: 81 Year
  Sex: Female

DRUGS (11)
  1. IPRATROPIUM BROMIDE [Concomitant]
  2. PLAVIX [Concomitant]
  3. ZOCOR [Concomitant]
  4. SYMBICORT [Suspect]
     Dosage: 160/4.5 MCG, TWO PUFFS TWICE A DAY
     Route: 055
  5. NEBULIZED DISTILLED WATER [Concomitant]
  6. SINUS RINSE [Concomitant]
  7. CALCIUM + D [Concomitant]
  8. ASTEPRO [Concomitant]
  9. MAXAIR [Concomitant]
  10. HYDROCHLOROTHIAZIDE [Concomitant]
  11. FLUTTER VALVE [Concomitant]

REACTIONS (2)
  - SINUSITIS [None]
  - BRONCHITIS [None]
